FAERS Safety Report 5245903-3 (Version None)
Quarter: 2007Q1

REPORT INFORMATION
  Report Type: 
  Country: None (occurrence: None)
  Receive Date: 20070221
  Receipt Date: 20070205
  Transmission Date: 20070707
  Serious: Yes (Hospitalization)
  Sender: FDA-Public Use
  Company Number: 236118

PATIENT
  Age: 36 Year
  Sex: Female

DRUGS (2)
  1. RAPTIVA [Suspect]
     Indication: PSORIASIS
     Dosage: 0.6 ML, 1/WEEK, SUBCUTANEOUS
     Route: 058
     Dates: start: 20061206, end: 20070103
  2. ACETAMINOPHEN [Concomitant]

REACTIONS (4)
  - ANISOCYTOSIS [None]
  - HEPATITIS [None]
  - SPLENOMEGALY [None]
  - THROMBOCYTOPENIA [None]
